FAERS Safety Report 8177703-9 (Version None)
Quarter: 2012Q1

REPORT INFORMATION
  Report Type: 
  Country: None (occurrence: None)
  Receive Date: 20120301
  Receipt Date: 20120227
  Transmission Date: 20120608
  Serious: Yes (Life-Threatening)
  Sender: FDA-Public Use
  Company Number: PHEH2012US004654

PATIENT
  Sex: Female

DRUGS (3)
  1. AFINITOR [Suspect]
     Dosage: 10 MG, PER DAY
     Route: 048
  2. AROMASIN [Concomitant]
  3. VITAMINS                           /90003601/ [Concomitant]

REACTIONS (7)
  - GASTROINTESTINAL DISORDER [None]
  - DIARRHOEA [None]
  - BONE PAIN [None]
  - ABDOMINAL PAIN UPPER [None]
  - CONSTIPATION [None]
  - DYSPEPSIA [None]
  - FEELING ABNORMAL [None]
